FAERS Safety Report 4318556-6 (Version None)
Quarter: 2004Q1

REPORT INFORMATION
  Report Type: 
  Country: None (occurrence: None)
  Receive Date: 20040318
  Receipt Date: 20040205
  Transmission Date: 20041129
  Serious: Yes (Other)
  Sender: FDA-Public Use
  Company Number: PHEH2004US01690

PATIENT
  Age: 63 Year
  Sex: Female

DRUGS (5)
  1. AREDIA [Suspect]
     Indication: METASTASES TO BONE
     Dosage: 90 MG,Q4-6WKS
     Route: 042
     Dates: start: 19961004, end: 20000101
  2. PAMIDRONATE DISODIUM [Suspect]
     Indication: METASTASES TO BONE
     Dosage: 90 MG, Q4WKS
     Route: 042
     Dates: start: 20000101, end: 20040106
  3. EPOGEN [Concomitant]
  4. OXYCONTIN [Concomitant]
  5. DECADRON [Concomitant]
     Dosage: 26MG TO 4MG/WITH CHEMO
     Dates: start: 20010220

REACTIONS (12)
  - BONE DISORDER [None]
  - BONE PAIN [None]
  - BREAST CANCER METASTATIC [None]
  - JAW DISORDER [None]
  - MOUTH ULCERATION [None]
  - NEUROPATHY [None]
  - ORAL PAIN [None]
  - ORAL SOFT TISSUE DISORDER [None]
  - PAIN IN EXTREMITY [None]
  - PAIN IN JAW [None]
  - PARAESTHESIA [None]
  - TUMOUR MARKER INCREASED [None]
